FAERS Safety Report 9155209 (Version 1)
Quarter: 2013Q1

REPORT INFORMATION
  Report Type: Spontaneous
  Country: US (occurrence: US)
  Receive Date: 20130311
  Receipt Date: 20130311
  Transmission Date: 20140127
  Serious: Yes (Hospitalization)
  Sender: FDA-Public Use
  Company Number: US-WATSON-2013-03320

PATIENT
  Age: 51 Year
  Sex: Male
  Weight: 145 kg

DRUGS (1)
  1. PENTAZOCINE + NALOXONE [Suspect]
     Indication: DENTAL DISCOMFORT
     Dosage: ONE TABLET EVERY FOUR HOURS
     Route: 048
     Dates: start: 20121212

REACTIONS (4)
  - Heart rate increased [Recovered/Resolved]
  - Hot flush [Recovered/Resolved]
  - Dizziness [Recovered/Resolved]
  - Dyspnoea [Recovered/Resolved]
